FAERS Safety Report 7090752-7 (Version None)
Quarter: 2010Q4

REPORT INFORMATION
  Report Type: 
  Country: None (occurrence: None)
  Receive Date: 20101109
  Receipt Date: 20101104
  Transmission Date: 20110411
  Serious: Yes (Death, Other)
  Sender: FDA-Public Use
  Company Number: PHHY2010JP74592

PATIENT
  Age: 25 Year
  Sex: Female

DRUGS (5)
  1. CYCLOSPORINE [Suspect]
     Indication: CORD BLOOD TRANSPLANT THERAPY
     Dosage: 3 MG/KG/DAY
  2. MYCOPHENOLATE MOFETIL [Suspect]
     Indication: CORD BLOOD TRANSPLANT THERAPY
     Dosage: 15 MG/KG BW/DAY
  3. PREDNISOLONE [Suspect]
     Indication: CORD BLOOD TRANSPLANT THERAPY
     Dosage: 2 MG/KG BW
  4. FLUDARABINE PHOSPHATE [Concomitant]
     Indication: CORD BLOOD TRANSPLANT THERAPY
  5. MELPHALAN HYDROCHLORIDE [Concomitant]
     Indication: CORD BLOOD TRANSPLANT THERAPY

REACTIONS (9)
  - ACUTE RESPIRATORY DISTRESS SYNDROME [None]
  - ANAEMIA [None]
  - DYSPNOEA [None]
  - OXYGEN SATURATION DECREASED [None]
  - PNEUMONIA [None]
  - PYREXIA [None]
  - RED BLOOD CELL SCHISTOCYTES PRESENT [None]
  - THROMBOTIC MICROANGIOPATHY [None]
  - WHITE BLOOD CELL COUNT INCREASED [None]
